FAERS Safety Report 7450526-1 (Version None)
Quarter: 2011Q2

REPORT INFORMATION
  Report Type: 
  Country: None (occurrence: None)
  Receive Date: 20110502
  Receipt Date: 20110425
  Transmission Date: 20111010
  Serious: Yes (Hospitalization)
  Sender: FDA-Public Use
  Company Number: PHHY2011AR35558

PATIENT
  Sex: Male

DRUGS (1)
  1. DIOVAN A [Suspect]
     Dosage: 1 DF, DAILY
     Dates: start: 20070101, end: 20090917

REACTIONS (1)
  - INFARCTION [None]
